FAERS Safety Report 14870406 (Version 1)
Quarter: 2018Q2

REPORT INFORMATION
  Report Type: Spontaneous
  Country: FI (occurrence: FI)
  Receive Date: 20180509
  Receipt Date: 20180509
  Transmission Date: 20180711
  Serious: Yes (Hospitalization, Other)
  Sender: FDA-Public Use
  Company Number: FI-ABBVIE-18K-055-2347340-00

PATIENT
  Age: 35 Year
  Sex: Male

DRUGS (8)
  1. ADALIMUMAB [Suspect]
     Active Substance: ADALIMUMAB
     Dosage: LOADING DOSE 1
     Route: 058
     Dates: start: 201612, end: 201612
  2. LEDERSPAN [Concomitant]
     Active Substance: TRIAMCINOLONE HEXACETONIDE
     Indication: HIDRADENITIS
     Dates: start: 201702, end: 201702
  3. LYMECYCLINE [Concomitant]
     Active Substance: LYMECYCLINE
     Dates: start: 2018
  4. INSULIN [Concomitant]
     Active Substance: INSULIN NOS
     Indication: PRODUCT USED FOR UNKNOWN INDICATION
     Dates: start: 2018
  5. ADALIMUMAB [Suspect]
     Active Substance: ADALIMUMAB
     Dosage: FROM 5TH WEEK
     Route: 058
     Dates: start: 201701
  6. ADALIMUMAB [Suspect]
     Active Substance: ADALIMUMAB
     Dosage: LOADING DOSE 2 (3RD WEEK)
     Route: 058
  7. LYMECYCLINE [Concomitant]
     Active Substance: LYMECYCLINE
     Indication: PRODUCT USED FOR UNKNOWN INDICATION
     Dates: start: 201803, end: 2018
  8. ADALIMUMAB [Suspect]
     Active Substance: ADALIMUMAB
     Indication: PRODUCT USED FOR UNKNOWN INDICATION
     Route: 058
     Dates: start: 201605, end: 201605

REACTIONS (18)
  - Subcutaneous abscess [Unknown]
  - Pyrexia [Recovered/Resolved]
  - Injection site pain [Unknown]
  - Cough [Unknown]
  - Post procedural fever [Unknown]
  - Post procedural oedema [Unknown]
  - Weight increased [Recovered/Resolved]
  - Hidradenitis [Unknown]
  - Pyrexia [Recovered/Resolved]
  - Groin abscess [Unknown]
  - Subcutaneous abscess [Unknown]
  - Pain [Unknown]
  - Abscess [Unknown]
  - Pyrexia [Recovered/Resolved]
  - Pyrexia [Unknown]
  - Abscess [Unknown]
  - Sinusitis [Unknown]
  - Nodule [Unknown]

NARRATIVE: CASE EVENT DATE: 201605
